FAERS Safety Report 9297077 (Version 1)
Quarter: 2013Q2

REPORT INFORMATION
  Report Type: Report from Study
  Country: MX (occurrence: MX)
  Receive Date: 20130518
  Receipt Date: 20130518
  Transmission Date: 20140414
  Serious: Yes (Other)
  Sender: FDA-Public Use
  Company Number: PHHY2013MX048556

PATIENT
  Age: 79 Year
  Sex: Male

DRUGS (4)
  1. GALVUS [Suspect]
     Dates: start: 201302
  2. EXFORGE HCT [Suspect]
     Indication: HYPERTENSION
     Dosage: 1 DF, DAILY (320 MG VALS, 10 MG AMLO AND 25 MG HCTZ)
     Route: 048
     Dates: start: 201302, end: 201303
  3. EXFORGE [Suspect]
     Indication: HYPERTENSION
     Dosage: 2 DF, BID (ONE TABLET IN THE MORNING AND ONE TABLET AT NIGHT) (160 MG VALS AND 5 MG AMLO)
     Dates: start: 20130322
  4. NORVAS [Concomitant]
     Dosage: 1 DF, DAILY (5 MG)
     Dates: start: 201302

REACTIONS (1)
  - Arterial occlusive disease [Recovering/Resolving]
